FAERS Safety Report 22233773 (Version 4)
Quarter: 2025Q2

REPORT INFORMATION
  Report Type: Spontaneous
  Country: US (occurrence: US)
  Receive Date: 20230420
  Receipt Date: 20250613
  Transmission Date: 20250716
  Serious: No
  Sender: VERTEX
  Company Number: US-VERTEX PHARMACEUTICALS-2023-005418

PATIENT
  Age: 9 Year
  Sex: Male

DRUGS (2)
  1. TRIKAFTA [Suspect]
     Active Substance: ELEXACAFTOR\IVACAFTOR\TEZACAFTOR
     Indication: Cystic fibrosis
     Dosage: 2 ORANGE TABS AM AND 1 BLUE TAB PM
     Route: 048
  2. TRIKAFTA [Suspect]
     Active Substance: ELEXACAFTOR\IVACAFTOR\TEZACAFTOR
     Dosage: BLUE IN AM AND ORANGE AT NIGHT
     Route: 048

REACTIONS (6)
  - Abdominal pain [Recovered/Resolved]
  - Liver disorder [Not Recovered/Not Resolved]
  - Constipation [Recovered/Resolved]
  - Somnolence [Recovered/Resolved]
  - Tachyphrenia [Recovered/Resolved]
  - Insomnia [Recovered/Resolved]
